FAERS Safety Report 6556804-2 (Version None)
Quarter: 2010Q1

REPORT INFORMATION
  Report Type: 
  Country: None (occurrence: None)
  Receive Date: 20100128
  Receipt Date: 20100119
  Transmission Date: 20100710
  Serious: Yes (Hospitalization, Other)
  Sender: FDA-Public Use
  Company Number: PHEH2009US15275

PATIENT
  Sex: Male
  Weight: 76 kg

DRUGS (2)
  1. NEORAL [Suspect]
     Indication: LUNG TRANSPLANT
     Dosage: 50 MG, Q12H
     Route: 048
     Dates: start: 20090701
  2. NEORAL [Suspect]
     Dosage: 225 MG, BID
     Route: 048

REACTIONS (5)
  - BRONCHOMALACIA [None]
  - ENDOTRACHEAL INTUBATION [None]
  - PNEUMONIA [None]
  - RESPIRATORY DISTRESS [None]
  - STENT PLACEMENT [None]
